FAERS Safety Report 13898634 (Version 2)
Quarter: 2017Q3

REPORT INFORMATION
  Report Type: Report from Study
  Country: CN (occurrence: CN)
  Receive Date: 20170823
  Receipt Date: 20170902
  Transmission Date: 20171127
  Serious: Yes (Hospitalization)
  Sender: FDA-Public Use
  Company Number: CN-AMGEN-CHNCT2017127363

PATIENT
  Age: 43 Year
  Sex: Male
  Weight: 80 kg

DRUGS (25)
  1. CARFILZOMIB [Suspect]
     Active Substance: CARFILZOMIB
     Dosage: 40 MG, UNK
     Route: 042
  2. DEXAMETHASONE. [Suspect]
     Active Substance: DEXAMETHASONE
     Indication: PLASMA CELL MYELOMA
     Dosage: 20 MG, PER CHEMO REGIM
     Route: 042
     Dates: start: 20170609
  3. GLUTATHIONE [Concomitant]
     Active Substance: GLUTATHIONE
     Dosage: 1.8 G-1.8 MG, UNK
     Route: 042
     Dates: start: 20170714, end: 20170827
  4. VALACICLOVIR HYDROCHLORIDE [Concomitant]
     Active Substance: VALACYCLOVIR HYDROCHLORIDE
     Dosage: 300 MG, UNK
     Route: 048
     Dates: start: 20170608
  5. RECOMBINANT HUMAN ERYTHROPOIETIN [Concomitant]
     Active Substance: ERYTHROPOIETIN
     Dosage: 10000 IU, UNK
     Route: 058
     Dates: start: 20170617, end: 20170819
  6. AMIODARONE HYDROCHLORIDE. [Concomitant]
     Active Substance: AMIODARONE HYDROCHLORIDE
     Indication: HEART RATE
     Dosage: 150-300 MG, UNK
     Route: 042
     Dates: start: 20170819, end: 20170819
  7. ESOMEPRAZOLE [Concomitant]
     Active Substance: ESOMEPRAZOLE
     Dosage: 40 MUG-40 MG, UNK
     Route: 042
     Dates: start: 20170617, end: 20170826
  8. CALCITONIN SALMON. [Concomitant]
     Active Substance: CALCITONIN SALMON
     Dosage: 100 IU, UNK
     Route: 030
     Dates: start: 20170609, end: 20170819
  9. MECOBALAMIN [Concomitant]
     Active Substance: METHYLCOBALAMIN
     Dosage: 1 MG, UNK
     Route: 042
     Dates: start: 20170722, end: 20170723
  10. SODIUM BICARBONATE. [Concomitant]
     Active Substance: SODIUM BICARBONATE
     Dosage: 1 G, UNK
     Route: 048
     Dates: start: 20170612, end: 20170821
  11. OMEPRAZOLE. [Concomitant]
     Active Substance: OMEPRAZOLE
     Dosage: 40 MG, UNK
     Route: 042
     Dates: start: 20170722, end: 20170820
  12. FUROSEMIDE. [Concomitant]
     Active Substance: FUROSEMIDE
     Dosage: 10-20 MG, UNK
     Route: 042
     Dates: start: 20170819, end: 20170820
  13. MAGNESIUM ISOGLYCYRRHIZINATE [Concomitant]
     Active Substance: MAGNESIUM ISOGLYCYRRHIZINATE
     Dosage: 40 ML, UNK
     Route: 042
     Dates: start: 20170609, end: 20170612
  14. CARFILZOMIB [Suspect]
     Active Substance: CARFILZOMIB
     Indication: PLASMA CELL MYELOMA
     Dosage: 54 MG, PER CHEMO REGIM
     Route: 042
     Dates: start: 20170609
  15. LANSOPRAZOLE. [Concomitant]
     Active Substance: LANSOPRAZOLE
     Dosage: 30 MG- 30 MUG, UNK
     Route: 042
     Dates: start: 20170609, end: 20170812
  16. COBAMAMIDE [Concomitant]
     Active Substance: COBAMAMIDE
     Dosage: 3 MG-3 MUG, UNK
     Route: 042
     Dates: start: 20170609, end: 20170820
  17. METOPROLOL TARTRATE. [Concomitant]
     Active Substance: METOPROLOL TARTRATE
     Dosage: 47.5 MG, UNK
     Route: 048
     Dates: start: 20170819, end: 20170819
  18. PROMETHAZINE [Concomitant]
     Active Substance: PROMETHAZINE\PROMETHAZINE HYDROCHLORIDE
     Dosage: 12.5 MG, UNK
     Route: 030
     Dates: start: 20170714, end: 20170714
  19. GRANISETRON [Concomitant]
     Active Substance: GRANISETRON
     Dosage: 3 MG, UNK
     Route: 042
     Dates: start: 20170714, end: 20170723
  20. TRAMADOL HYDROCHLORIDE. [Concomitant]
     Active Substance: TRAMADOL HYDROCHLORIDE
     Dosage: 100 MG, UNK
     Route: 048
     Dates: start: 20170720, end: 20170722
  21. SODIUM CHLORIDE. [Concomitant]
     Active Substance: SODIUM CHLORIDE
     Dosage: 250-500 ML, UNK
     Route: 042
     Dates: start: 20170609, end: 20170820
  22. TROPISETRON [Concomitant]
     Active Substance: TROPISETRON
     Dosage: 5 MG, UNK
     Route: 042
     Dates: start: 20170609, end: 20170820
  23. TORASEMIDE [Concomitant]
     Active Substance: TORSEMIDE
     Dosage: 20 MG, UNK
     Route: 042
     Dates: start: 20170608, end: 20170819
  24. ACETYLCYSTEINE. [Concomitant]
     Active Substance: ACETYLCYSTEINE
     Dosage: 4 G, UNK
     Route: 042
     Dates: start: 20170708, end: 20170709
  25. ZOLEDRONIC ACID [Concomitant]
     Active Substance: ZOLEDRONIC ACID
     Dosage: 4 MG, UNK
     Route: 042
     Dates: start: 20170608, end: 20170608

REACTIONS (1)
  - Supraventricular tachycardia [Recovered/Resolved]

NARRATIVE: CASE EVENT DATE: 20170819
